FAERS Safety Report 11544126 (Version 1)
Quarter: 2015Q3

REPORT INFORMATION
  Report Type: Spontaneous
  Country: US (occurrence: US)
  Receive Date: 20150924
  Receipt Date: 20150924
  Transmission Date: 20151125
  Serious: Yes (Hospitalization)
  Sender: FDA-Public Use
  Company Number: US-ROCHE-1638114

PATIENT
  Age: 88 Year
  Sex: Female
  Weight: 68 kg

DRUGS (1)
  1. MIRCERA [Suspect]
     Active Substance: METHOXY POLYETHYLENE GLYCOL-EPOETIN BETA
     Indication: NEPHROGENIC ANAEMIA
     Dosage: ON 02/SEP/2015, RECEIVED MOST RECENT DOSE
     Route: 050
     Dates: start: 20150729

REACTIONS (4)
  - Staphylococcal bacteraemia [Recovered/Resolved]
  - Angioedema [Unknown]
  - Dyspnoea [Unknown]
  - Lip swelling [Unknown]

NARRATIVE: CASE EVENT DATE: 20150824
